FAERS Safety Report 22608490 (Version 2)
Quarter: 2023Q2

REPORT INFORMATION
  Report Type: Other
  Country: JP (occurrence: None)
  Receive Date: 20230616
  Receipt Date: 20230620
  Transmission Date: 20230722
  Serious: Yes (Death, Other)
  Sender: FDA-Public Use
  Company Number: JP-ROCHE-3367791

PATIENT
  Age: 54 Year
  Sex: Male

DRUGS (4)
  1. BEVACIZUMAB [Suspect]
     Active Substance: BEVACIZUMAB
     Indication: Metastases to penis
     Route: 042
  2. OXALIPLATIN [Suspect]
     Active Substance: OXALIPLATIN
     Indication: Metastases to penis
     Route: 041
  3. FLUOROURACIL [Suspect]
     Active Substance: FLUOROURACIL
     Indication: Metastases to penis
     Dosage: DAY 1 -2
     Route: 041
  4. LEUCOVORIN [Suspect]
     Active Substance: LEUCOVORIN
     Indication: Metastases to penis
     Route: 041

REACTIONS (2)
  - Disease progression [Fatal]
  - Drug ineffective [Unknown]
